FAERS Safety Report 9696739 (Version 1)
Quarter: 2013Q4

REPORT INFORMATION
  Report Type: Spontaneous
  Country: US (occurrence: US)
  Receive Date: 20131119
  Receipt Date: 20131119
  Transmission Date: 20140711
  Serious: No
  Sender: FDA-Public Use
  Company Number: US-GILEAD-2007-0014353

PATIENT
  Sex: Female
  Weight: 109.1 kg

DRUGS (13)
  1. LETAIRIS [Suspect]
     Indication: PULMONARY HYPERTENSION
     Route: 048
  2. LETAIRIS [Suspect]
     Route: 048
     Dates: end: 20071114
  3. NORMAL SALINE [Concomitant]
     Dosage: CONTINUOUS
     Route: 042
  4. SODIUM CHLORIDE [Concomitant]
     Route: 042
  5. REMODULIN [Concomitant]
     Dosage: CONTINUOUS
     Route: 042
  6. TORSEMIDE [Concomitant]
     Route: 048
  7. POTASSIUM CHLORIDE [Concomitant]
     Route: 048
  8. AMBIEN [Concomitant]
     Dosage: AT BEDTIME
     Route: 048
  9. WARFARIN SODIUM [Concomitant]
     Route: 048
  10. ULTRAM [Concomitant]
     Dosage: Q8HP
     Route: 048
  11. OXYGEN [Concomitant]
     Dosage: CONTINUOUS
     Route: 045
  12. FLUOCINONIDE [Concomitant]
     Route: 061
  13. PROTONIX [Concomitant]
     Route: 048

REACTIONS (4)
  - Flushing [Unknown]
  - Sinus congestion [Unknown]
  - Headache [Unknown]
  - Oedema peripheral [Unknown]
